FAERS Safety Report 4690183-0 (Version None)
Quarter: 2005Q2

REPORT INFORMATION
  Report Type: 
  Country: None (occurrence: None)
  Receive Date: 20050613
  Receipt Date: 20050608
  Transmission Date: 20051028
  Serious: Yes (Other)
  Sender: FDA-Public Use
  Company Number: 200510447BVD

PATIENT
  Sex: Male
  Weight: 98 kg

DRUGS (1)
  1. AVELOX [Suspect]

REACTIONS (6)
  - ACUTE ABDOMEN [None]
  - FAECES DISCOLOURED [None]
  - GASTROINTESTINAL STROMAL TUMOUR [None]
  - GENERAL PHYSICAL HEALTH DETERIORATION [None]
  - JAUNDICE [None]
  - METASTASES TO LIVER [None]
